FAERS Safety Report 4335769-8 (Version None)
Quarter: 2004Q2

REPORT INFORMATION
  Report Type: 
  Country: None (occurrence: None)
  Receive Date: 20040408
  Receipt Date: 20040323
  Transmission Date: 20050107
  Serious: Yes (Death)
  Sender: FDA-Public Use
  Company Number: 04-03-0418

PATIENT
  Age: 64 Year
  Sex: Female

DRUGS (1)
  1. CLOZAPINE [Suspect]
     Indication: MENTAL DISORDER DUE TO A GENERAL MEDICAL CONDITION
     Dosage: 50-100MG QD ORAL
     Route: 048
     Dates: start: 20040301, end: 20040301

REACTIONS (1)
  - GASTROINTESTINAL HAEMORRHAGE [None]
